FAERS Safety Report 10204107 (Version 1)
Quarter: 2014Q2

REPORT INFORMATION
  Report Type: Spontaneous
  Country: US (occurrence: US)
  Receive Date: 20140529
  Receipt Date: 20140529
  Transmission Date: 20141212
  Serious: Yes (Hospitalization, Other)
  Sender: FDA-Public Use
  Company Number: US-ACTAVIS-2014-11367

PATIENT
  Age: 16 Year
  Sex: Male

DRUGS (6)
  1. ETOPOSIDE (WATSON LABORATORIES) [Suspect]
     Indication: CHEMOTHERAPY
     Dosage: UNK
     Route: 065
  2. PIPERACILLIN-TAZOBACTAM (UNKNOWN) [Suspect]
     Indication: PRODUCT USED FOR UNKNOWN INDICATION
     Dosage: UNK
     Route: 065
  3. VANCOMYCIN HCL (WATSON LABORATORIES) [Suspect]
     Indication: PRODUCT USED FOR UNKNOWN INDICATION
     Dosage: UNK
     Route: 065
  4. CYTARABINE [Suspect]
     Indication: CHEMOTHERAPY
     Dosage: UNK
     Route: 065
  5. DAUNORUBICIN [Suspect]
     Indication: CHEMOTHERAPY
     Dosage: UNK
     Route: 065
  6. VORICONAZOLE [Suspect]
     Indication: PRODUCT USED FOR UNKNOWN INDICATION
     Dosage: UNK
     Route: 065

REACTIONS (7)
  - Tubulointerstitial nephritis [Recovering/Resolving]
  - Staphylococcal infection [Unknown]
  - Neutropenia [Unknown]
  - Pyrexia [Unknown]
  - Petechiae [Unknown]
  - Vomiting [Unknown]
  - Hypotension [Unknown]
